FAERS Safety Report 10699040 (Version 1)
Quarter: 2015Q1

REPORT INFORMATION
  Report Type: Spontaneous
  Country: US (occurrence: US)
  Receive Date: 20150108
  Receipt Date: 20150108
  Transmission Date: 20150721
  Serious: No
  Sender: FDA-Public Use
  Company Number: US-BAYER-2015-002171

PATIENT
  Age: 81 Year
  Sex: Female
  Weight: 100.68 kg

DRUGS (1)
  1. ALEVE PM [Suspect]
     Active Substance: DIPHENHYDRAMINE HYDROCHLORIDE\NAPROXEN SODIUM
     Indication: BACK PAIN
     Dosage: 2 DF, PRN
     Route: 048
     Dates: start: 20150105

REACTIONS (1)
  - Drug ineffective [None]

NARRATIVE: CASE EVENT DATE: 20150106
